FAERS Safety Report 7301668-2 (Version None)
Quarter: 2011Q1

REPORT INFORMATION
  Report Type: 
  Country: None (occurrence: None)
  Receive Date: 20110218
  Receipt Date: 20110210
  Transmission Date: 20110831
  Serious: Yes (Hospitalization)
  Sender: FDA-Public Use
  Company Number: NL-MEDIMMUNE-MEDI-0012360

PATIENT
  Sex: Male
  Weight: 7.04 kg

DRUGS (2)
  1. SYNAGIS [Suspect]
     Route: 030
     Dates: start: 20110127, end: 20110127
  2. SYNAGIS [Suspect]
     Route: 030
     Dates: start: 20101105, end: 20101231

REACTIONS (3)
  - DIAPHRAGMATIC DISORDER [None]
  - MALAISE [None]
  - RESPIRATORY SYNCYTIAL VIRUS INFECTION [None]
